FAERS Safety Report 10078424 (Version 1)
Quarter: 2014Q2

REPORT INFORMATION
  Report Type: Spontaneous
  Country: US (occurrence: None)
  Receive Date: 20140403
  Receipt Date: 20140403
  Transmission Date: 20141212
  Serious: Yes (Other)
  Sender: FDA-Public Use
  Company Number: ADR-2014-00483

PATIENT
  Age: 53 Year
  Sex: Male

DRUGS (1)
  1. COMPOUNDED BACLOFEN INTRATHECAL - 2,000MCG/ML [Suspect]
     Indication: MUSCLE SPASTICITY

REACTIONS (17)
  - Device power source issue [None]
  - Muscle spasticity [None]
  - Hypertonia [None]
  - Muscle tightness [None]
  - Hyperhidrosis [None]
  - Underdose [None]
  - Muscle twitching [None]
  - Anxiety [None]
  - Device malfunction [None]
  - Dysstasia [None]
  - Posture abnormal [None]
  - Aphasia [None]
  - Mobility decreased [None]
  - Feeling abnormal [None]
  - Asthenia [None]
  - Chromaturia [None]
  - Dyspnoea [None]
